FAERS Safety Report 22223117 (Version 1)
Quarter: 2023Q2

REPORT INFORMATION
  Report Type: Spontaneous
  Country: US (occurrence: None)
  Receive Date: 20230417
  Receipt Date: 20230417
  Transmission Date: 20230721
  Serious: Yes (Hospitalization)
  Sender: FDA-Public Use
  Company Number: None

PATIENT
  Age: 71 Year
  Sex: Male
  Weight: 76.5 kg

DRUGS (17)
  1. FAMOTIDINE [Suspect]
     Active Substance: FAMOTIDINE
     Indication: Laryngeal granuloma
     Dosage: OTHER QUANTITY : 180 TABLET(S);?FREQUENCY : TWICE A DAY;?
     Route: 048
     Dates: start: 20230116, end: 20230331
  2. GAVISCON [Suspect]
     Active Substance: ALUMINUM HYDROXIDE\MAGNESIUM CARBONATE
  3. Glymeperide [Concomitant]
  4. METFORMIN [Concomitant]
     Active Substance: METFORMIN HYDROCHLORIDE
  5. ATORVASTATIN [Concomitant]
     Active Substance: ATORVASTATIN
  6. LOSARTAN [Concomitant]
  7. TAMSULOSIN [Concomitant]
  8. ASMANEX [Concomitant]
     Active Substance: MOMETASONE FUROATE
  9. DIETARY SUPPLEMENT [Concomitant]
     Active Substance: DIETARY SUPPLEMENT
  10. SCHIFF MOVE FREE [Concomitant]
     Active Substance: DIETARY SUPPLEMENT
  11. Echinacea [Concomitant]
  12. VITAMIN A [Concomitant]
     Active Substance: VITAMIN A
  13. VITAMIN B COMPLEX [Concomitant]
     Active Substance: CYANOCOBALAMIN\DEXPANTHENOL\NIACINAMIDE\PYRIDOXINE HYDROCHLORIDE\RIBOFLAVIN 5^-PHOSPHATE SODIUM\THIA
  14. Vitamin C [Concomitant]
  15. ZINC [Concomitant]
     Active Substance: ZINC
  16. MAGNESIUM [Concomitant]
  17. Protein/Collagen Powder [Concomitant]

REACTIONS (1)
  - Nephrolithiasis [None]

NARRATIVE: CASE EVENT DATE: 20230412
